FAERS Safety Report 6590150-6 (Version None)
Quarter: 2010Q1

REPORT INFORMATION
  Report Type: 
  Country: None (occurrence: None)
  Receive Date: 20100212
  Receipt Date: 20100201
  Transmission Date: 20100710
  Serious: Yes (Other)
  Sender: FDA-Public Use
  Company Number: 232164J09USA

PATIENT
  Age: 55 Year
  Sex: Female

DRUGS (3)
  1. REBIF [Suspect]
     Indication: MULTIPLE SCLEROSIS
     Dosage: 22 MCG, 3 IN 1 WEEKS, SUBCUTANEOUS
     Route: 058
     Dates: start: 20090330
  2. LEXAPRO [Concomitant]
  3. CYMBALTA [Concomitant]

REACTIONS (11)
  - ABDOMINAL PAIN LOWER [None]
  - BLOOD URINE PRESENT [None]
  - CHAPPED LIPS [None]
  - DYSPHAGIA [None]
  - DYSURIA [None]
  - HAIR TEXTURE ABNORMAL [None]
  - MALAISE [None]
  - ONYCHOCLASIS [None]
  - SKIN EXFOLIATION [None]
  - TINEA PEDIS [None]
  - VAGINAL HAEMORRHAGE [None]
